FAERS Safety Report 25809958 (Version 1)
Quarter: 2025Q3

REPORT INFORMATION
  Report Type: Spontaneous
  Country: ID (occurrence: ID)
  Receive Date: 20250917
  Receipt Date: 20250917
  Transmission Date: 20251021
  Serious: Yes (Other)
  Sender: UNICHEM
  Company Number: ID-UNICHEM LABORATORIES LIMITED-UNI-2025-ID-003201

PATIENT

DRUGS (3)
  1. ARIPIPRAZOLE [Suspect]
     Active Substance: ARIPIPRAZOLE
     Indication: Schizophrenia
     Route: 065
  2. ARIPIPRAZOLE [Suspect]
     Active Substance: ARIPIPRAZOLE
     Route: 065
  3. LORAZEPAM [Concomitant]
     Active Substance: LORAZEPAM
     Indication: Schizophrenia
     Route: 065

REACTIONS (3)
  - Arrhythmia [Recovering/Resolving]
  - Condition aggravated [Recovering/Resolving]
  - Incorrect dose administered [Unknown]
